FAERS Safety Report 7725340-X (Version None)
Quarter: 2011Q3

REPORT INFORMATION
  Report Type: 
  Country: None (occurrence: None)
  Receive Date: 20110829
  Receipt Date: 20110818
  Transmission Date: 20111222
  Serious: Yes (Other)
  Sender: FDA-Public Use
  Company Number: 2011MA008374

PATIENT
  Age: 21 Year
  Sex: Female

DRUGS (3)
  1. METOCLOPRAMIDE [Suspect]
     Indication: LABOUR PAIN
     Dosage: 10 MG; IM
     Route: 030
     Dates: start: 20110609, end: 20110609
  2. FOLIC ACID [Concomitant]
  3. MEPERIDINE HYDROCHLORIDE [Suspect]
     Indication: LABOUR PAIN
     Dosage: 100 MG; IM
     Route: 030
     Dates: start: 20110609, end: 20110609

REACTIONS (4)
  - ABNORMAL BEHAVIOUR [None]
  - ACUTE PSYCHOSIS [None]
  - AGGRESSION [None]
  - MATERNAL EXPOSURE DURING PREGNANCY [None]
